FAERS Safety Report 7531166-2 (Version None)
Quarter: 2011Q2

REPORT INFORMATION
  Report Type: 
  Country: None (occurrence: None)
  Receive Date: 20110608
  Receipt Date: 20110527
  Transmission Date: 20111010
  Serious: Yes (Congenital Anomaly)
  Sender: FDA-Public Use
  Company Number: BE-BAYER-200935383GPV

PATIENT
  Sex: Male
  Weight: 3.2 kg

DRUGS (1)
  1. BETASERON [Suspect]
     Dosage: DRUG EXPOSURE VIA FATHER

REACTIONS (8)
  - TALIPES [None]
  - CONGENITAL AORTIC STENOSIS [None]
  - DEVELOPMENTAL DELAY [None]
  - CONGENITAL HYDROCEPHALUS [None]
  - CONGENITAL RENAL DISORDER [None]
  - DYSMORPHISM [None]
  - GROWTH RETARDATION [None]
  - OBESITY [None]
